FAERS Safety Report 21436122 (Version 1)
Quarter: 2022Q4

REPORT INFORMATION
  Report Type: Spontaneous
  Country: US (occurrence: US)
  Receive Date: 20221010
  Receipt Date: 20221010
  Transmission Date: 20230112
  Serious: Yes (Hospitalization, Disabling, Other)
  Sender: FDA-Public Use
  Company Number: US-ORGANON-1106USA01022

PATIENT
  Sex: Female
  Weight: 62.142 kg

DRUGS (4)
  1. FOSAMAX [Suspect]
     Active Substance: ALENDRONATE SODIUM
     Indication: Osteoporosis
     Dosage: 10 MG, QD
     Route: 048
     Dates: start: 199801
  2. FOSAMAX [Suspect]
     Active Substance: ALENDRONATE SODIUM
     Dosage: 70 MG, QD
     Route: 048
     Dates: start: 20070718
  3. FOSAMAX [Suspect]
     Active Substance: ALENDRONATE SODIUM
     Dosage: 70 MG, QW
     Route: 048
     Dates: end: 20100517
  4. FOSAMAX PLUS D [Suspect]
     Active Substance: ALENDRONATE SODIUM\CHOLECALCIFEROL
     Indication: Osteoporosis
     Dosage: 70/2800 (UNITS UNSPECIFIED), QW
     Route: 048
     Dates: start: 20080820

REACTIONS (18)
  - Femur fracture [Unknown]
  - Hypokalaemia [Unknown]
  - Pain in extremity [Not Recovered/Not Resolved]
  - Fall [Unknown]
  - Sjogren^s syndrome [Unknown]
  - Angiomyolipoma [Unknown]
  - Fracture nonunion [Unknown]
  - Osteosclerosis [Unknown]
  - Hypertension [Unknown]
  - Hypercholesterolaemia [Unknown]
  - Renal cyst [Unknown]
  - Large intestine polyp [Unknown]
  - Breast calcifications [Unknown]
  - Impaired healing [Unknown]
  - Visual impairment [Unknown]
  - Bursitis [Unknown]
  - Overdose [Unknown]
  - Inappropriate schedule of product administration [Unknown]

NARRATIVE: CASE EVENT DATE: 19991114
